FAERS Safety Report 6594909-0 (Version None)
Quarter: 2010Q1

REPORT INFORMATION
  Report Type: 
  Country: None (occurrence: None)
  Receive Date: 20100222
  Receipt Date: 20100208
  Transmission Date: 20100710
  Serious: Yes (Hospitalization, Other)
  Sender: FDA-Public Use
  Company Number: IT-GENENTECH-297358

PATIENT
  Sex: Female

DRUGS (8)
  1. XOLAIR [Suspect]
     Indication: ASTHMA
     Dosage: 375 MG, UNK
     Route: 058
     Dates: start: 20091201
  2. XOLAIR [Suspect]
     Dosage: UNK
     Dates: start: 20070101
  3. XYZAL [Concomitant]
     Indication: DRUG USE FOR UNKNOWN INDICATION
  4. ATARAX [Concomitant]
     Indication: DRUG USE FOR UNKNOWN INDICATION
  5. LANSOX [Concomitant]
     Indication: DRUG USE FOR UNKNOWN INDICATION
  6. MEDROL [Concomitant]
     Indication: DRUG USE FOR UNKNOWN INDICATION
     Dosage: UNK
     Dates: start: 20091216, end: 20091230
  7. PARACETAMOL [Concomitant]
     Indication: DRUG USE FOR UNKNOWN INDICATION
  8. FLUTICASONE PROPIONATE/SALMETEROL XINAFOATE [Concomitant]
     Indication: DRUG USE FOR UNKNOWN INDICATION
     Dosage: UNK
     Dates: start: 20091222, end: 20091228

REACTIONS (1)
  - ANAPHYLACTIC REACTION [None]
